FAERS Safety Report 13708402 (Version 1)
Quarter: 2017Q2

REPORT INFORMATION
  Report Type: Spontaneous
  Country: JP (occurrence: JP)
  Receive Date: 20170630
  Receipt Date: 20170630
  Transmission Date: 20170830
  Serious: Yes (Death, Hospitalization, Other)
  Sender: FDA-Public Use
  Company Number: JP-HQ SPECIALTY-JP-2017INT000224

PATIENT
  Age: 61 Year
  Sex: Male

DRUGS (14)
  1. CISPLATIN. [Suspect]
     Active Substance: CISPLATIN
     Dosage: 90 MG, ON DAY 8, COURSE 2
     Route: 042
  2. CISPLATIN. [Suspect]
     Active Substance: CISPLATIN
     Dosage: 90 MG, ON DAY 8, COURSE 5
     Route: 042
  3. CISPLATIN. [Suspect]
     Active Substance: CISPLATIN
     Dosage: 90 MG, ON DAY 8, COURSE 6
     Route: 042
  4. GIMERACIL W/OTERACIL POTASSIUM/TEGAFUR [Suspect]
     Active Substance: GIMERACIL\OTERACIL\TEGAFUR
     Dosage: 100 MG, FOR 3 WEEKS, COURSE 2
     Route: 048
  5. GIMERACIL W/OTERACIL POTASSIUM/TEGAFUR [Suspect]
     Active Substance: GIMERACIL\OTERACIL\TEGAFUR
     Dosage: 100 MG, FOR 3 WEEKS, COURSE 7
     Route: 048
  6. GIMERACIL W/OTERACIL POTASSIUM/TEGAFUR [Suspect]
     Active Substance: GIMERACIL\OTERACIL\TEGAFUR
     Dosage: 100 MG, FOR 3 WEEKS, COURSE 5
     Route: 048
  7. CISPLATIN. [Suspect]
     Active Substance: CISPLATIN
     Dosage: 90 MG, ON DAY 8, COURSE 4
     Route: 042
  8. GIMERACIL W/OTERACIL POTASSIUM/TEGAFUR [Suspect]
     Active Substance: GIMERACIL\OTERACIL\TEGAFUR
     Indication: GASTRIC CANCER
     Dosage: 100 MG, FOR 3 WEEKS, COURSE 1
     Route: 048
  9. GIMERACIL W/OTERACIL POTASSIUM/TEGAFUR [Suspect]
     Active Substance: GIMERACIL\OTERACIL\TEGAFUR
     Dosage: 100 MG, FOR 3 WEEKS, COURSE 4
     Route: 048
  10. CISPLATIN. [Suspect]
     Active Substance: CISPLATIN
     Indication: GASTRIC CANCER
     Dosage: 90 MG, ON DAY 8, COURSE 1
  11. CISPLATIN. [Suspect]
     Active Substance: CISPLATIN
     Dosage: 90 MG, ON DAY 8, COURSE 7
     Route: 042
  12. GIMERACIL W/OTERACIL POTASSIUM/TEGAFUR [Suspect]
     Active Substance: GIMERACIL\OTERACIL\TEGAFUR
     Dosage: 100 MG, FOR 3 WEEKS, COURSE 6
     Route: 048
  13. CISPLATIN. [Suspect]
     Active Substance: CISPLATIN
     Dosage: 90 MG, ON DAY 8, COURSE 3
     Route: 042
  14. GIMERACIL W/OTERACIL POTASSIUM/TEGAFUR [Suspect]
     Active Substance: GIMERACIL\OTERACIL\TEGAFUR
     Dosage: 100 MG, FOR 3 WEEKS, COURSE 3
     Route: 048

REACTIONS (4)
  - Hypercalcaemia of malignancy [Not Recovered/Not Resolved]
  - Multiple organ dysfunction syndrome [Fatal]
  - Disseminated intravascular coagulation [Fatal]
  - Tumour lysis syndrome [Unknown]
